FAERS Safety Report 19902076 (Version 1)
Quarter: 2021Q3

REPORT INFORMATION
  Report Type: Spontaneous
  Country: CA (occurrence: CA)
  Receive Date: 20210930
  Receipt Date: 20210930
  Transmission Date: 20211014
  Serious: Yes (Hospitalization)
  Sender: FDA-Public Use
  Company Number: CA-TEVA-2021-CA-1958458

PATIENT
  Sex: Female

DRUGS (11)
  1. DEXAMETHASONE. [Concomitant]
     Active Substance: DEXAMETHASONE
     Route: 065
  2. BACTRIM [Concomitant]
     Active Substance: SULFAMETHOXAZOLE\TRIMETHOPRIM
  3. FLUTICASONE. [Concomitant]
     Active Substance: FLUTICASONE
  4. SALBUTAMOL [Concomitant]
     Active Substance: ALBUTEROL
  5. CICLESONIDE [Concomitant]
     Active Substance: CICLESONIDE
  6. ONDANSETRON [Concomitant]
     Active Substance: ONDANSETRON
  7. VINCRISTINE SULFATE. [Suspect]
     Active Substance: VINCRISTINE SULFATE
     Route: 065
  8. CHLORHEXIDINE [Concomitant]
     Active Substance: CHLORHEXIDINE
  9. METHOTREXATE. [Suspect]
     Active Substance: METHOTREXATE
     Route: 037
  10. MERCAPTOPURINE. [Concomitant]
     Active Substance: MERCAPTOPURINE
  11. PEG 3350 [Concomitant]
     Active Substance: POLYETHYLENE GLYCOL 3350

REACTIONS (1)
  - Febrile neutropenia [Recovering/Resolving]
